FAERS Safety Report 15210025 (Version 5)
Quarter: 2019Q1

REPORT INFORMATION
  Report Type: Report from Study
  Country: US (occurrence: US)
  Receive Date: 20180727
  Receipt Date: 20190313
  Transmission Date: 20190417
  Serious: Yes (Hospitalization, Other)
  Sender: FDA-Public Use
  Company Number: US-ACTELION-A-NJ2017-164066

PATIENT
  Age: 60 Year
  Sex: Female
  Weight: 104.31 kg

DRUGS (4)
  1. OPSUMIT [Suspect]
     Active Substance: MACITENTAN
     Indication: PULMONARY ARTERIAL HYPERTENSION
     Dosage: 10 MG, QD
     Route: 048
     Dates: start: 20140313
  2. XARELTO [Concomitant]
     Active Substance: RIVAROXABAN
  3. REVATIO [Concomitant]
     Active Substance: SILDENAFIL CITRATE
  4. ADEMPAS [Concomitant]
     Active Substance: RIOCIGUAT

REACTIONS (7)
  - Dyspnoea [Unknown]
  - Respiratory tract infection [Not Recovered/Not Resolved]
  - Pulmonary arterial hypertension [Unknown]
  - Haemoptysis [Not Recovered/Not Resolved]
  - Latent tuberculosis [Not Recovered/Not Resolved]
  - Hospitalisation [Unknown]
  - Chronic obstructive pulmonary disease [Unknown]

NARRATIVE: CASE EVENT DATE: 20171206
